FAERS Safety Report 15063081 (Version 2)
Quarter: 2018Q3

REPORT INFORMATION
  Report Type: Spontaneous
  Country: US (occurrence: US)
  Receive Date: 20180625
  Receipt Date: 20180717
  Transmission Date: 20181010
  Serious: Yes (Other)
  Sender: FDA-Public Use
  Company Number: US-ASTRAZENECA-2018SE80605

PATIENT
  Age: 84 Year
  Sex: Female
  Weight: 54 kg

DRUGS (5)
  1. PROLIA [Concomitant]
     Active Substance: DENOSUMAB
     Indication: OSTEOPOROSIS
     Dosage: EVERY SIX MONTHS
  2. TUDORZA PRESSAIR [Suspect]
     Active Substance: ACLIDINIUM BROMIDE
     Indication: EMPHYSEMA
     Route: 055
     Dates: start: 2012
  3. TUDORZA PRESSAIR [Suspect]
     Active Substance: ACLIDINIUM BROMIDE
     Indication: ASTHMA
     Route: 055
     Dates: start: 2012
  4. OXYGEN. [Concomitant]
     Active Substance: OXYGEN
     Dosage: CONTINUOUSLY
     Route: 065
  5. ADVAIR HFA [Concomitant]
     Active Substance: FLUTICASONE PROPIONATE\SALMETEROL XINAFOATE
     Dosage: 250MCG OVER 50MCG FOR LAST 15 TO 20 YEARS, TOOK 1 DOSE IN THE MORNING AND 1 DOSE IN THE EVENING
     Route: 065

REACTIONS (10)
  - Blindness [Not Recovered/Not Resolved]
  - Chronic obstructive pulmonary disease [Unknown]
  - Product use in unapproved indication [Not Recovered/Not Resolved]
  - Cataract [Unknown]
  - Product use complaint [Not Recovered/Not Resolved]
  - Cardiomegaly [Unknown]
  - Frustration tolerance decreased [Unknown]
  - Off label use [Not Recovered/Not Resolved]
  - Macular degeneration [Not Recovered/Not Resolved]
  - Device malfunction [Unknown]

NARRATIVE: CASE EVENT DATE: 2017
